FAERS Safety Report 15936363 (Version 1)
Quarter: 2019Q1

REPORT INFORMATION
  Report Type: Spontaneous
  Country: US (occurrence: US)
  Receive Date: 20190207
  Receipt Date: 20190207
  Transmission Date: 20190417
  Serious: No
  Sender: FDA-Public Use
  Company Number: None

PATIENT
  Sex: Female

DRUGS (16)
  1. PREDNISONE. [Concomitant]
     Active Substance: PREDNISONE
  2. KETOCONAZOLE. [Concomitant]
     Active Substance: KETOCONAZOLE
  3. OSELTAMIVIR [Concomitant]
     Active Substance: OSELTAMIVIR
  4. CEFDINIR. [Concomitant]
     Active Substance: CEFDINIR
  5. AMOXICILLIN. [Concomitant]
     Active Substance: AMOXICILLIN
  6. MISOPROSTOL. [Concomitant]
     Active Substance: MISOPROSTOL
  7. IBUPROFEN. [Concomitant]
     Active Substance: IBUPROFEN
  8. NORLYDA [Concomitant]
     Active Substance: NORETHINDRONE
  9. OFLOXACIN. [Concomitant]
     Active Substance: OFLOXACIN
  10. AZITHROMYCIN ANHYDROUS. [Concomitant]
     Active Substance: AZITHROMYCIN ANHYDROUS
  11. CLOBETASOL [Concomitant]
     Active Substance: CLOBETASOL
  12. APAP/CODEINE [Concomitant]
     Active Substance: ACETAMINOPHEN\CODEINE PHOSPHATE
  13. PROAIR HFA [Concomitant]
     Active Substance: ALBUTEROL SULFATE
  14. HUMIRA [Suspect]
     Active Substance: ADALIMUMAB
     Indication: RHEUMATOID ARTHRITIS
     Dosage: ?          OTHER FREQUENCY:QOW;?
     Route: 058
     Dates: start: 20150205
  15. FLUTICASONE. [Concomitant]
     Active Substance: FLUTICASONE
  16. ALBUTEROL. [Concomitant]
     Active Substance: ALBUTEROL

REACTIONS (2)
  - Abortion spontaneous [None]
  - Exposure during pregnancy [None]
